FAERS Safety Report 16429682 (Version 2)
Quarter: 2019Q3

REPORT INFORMATION
  Report Type: Spontaneous
  Country: DE (occurrence: DE)
  Receive Date: 20190614
  Receipt Date: 20190705
  Transmission Date: 20191004
  Serious: Yes (Hospitalization)
  Sender: FDA-Public Use
  Company Number: DE-AMERIGEN PHARMACEUTICALS, INC-2019AMG000027

PATIENT

DRUGS (6)
  1. SULPROSTONE [Concomitant]
     Active Substance: SULPROSTONE
     Indication: HAEMOSTASIS
     Dosage: UNK
     Route: 065
  2. FIBRINOGEN [Concomitant]
     Active Substance: FIBRINOGEN HUMAN
     Indication: HAEMOSTASIS
     Dosage: 4 G, UNK
     Route: 065
  3. OXYTOCIN. [Concomitant]
     Active Substance: OXYTOCIN
     Indication: HAEMOSTASIS
     Dosage: UNK
     Route: 065
  4. PPSB                               /01126001/ [Concomitant]
     Active Substance: COAGULATION FACTOR IX HUMAN
     Indication: HAEMOSTASIS
     Dosage: 4000 IU, UNK
     Route: 065
  5. ERYTHROCYTES [Concomitant]
     Active Substance: HUMAN RED BLOOD CELL
     Indication: HAEMOSTASIS
     Dosage: UNK (6 ERYTHROCYTE CONCENTRATES WERE TRANSFUSED)
     Route: 065
  6. TRANEXAMIC ACID UNKNOWN [Suspect]
     Active Substance: TRANEXAMIC ACID
     Indication: HAEMOSTASIS
     Dosage: 2 G, UNK (PARTIAL APPLICATION OF A LOADING DOSE)
     Route: 065

REACTIONS (4)
  - Renal cortical necrosis [Unknown]
  - Pleural effusion [Unknown]
  - Thrombosis [Unknown]
  - Renal failure [Unknown]
